FAERS Safety Report 4317458-9 (Version None)
Quarter: 2004Q1

REPORT INFORMATION
  Report Type: 
  Country: None (occurrence: None)
  Receive Date: 20040312
  Receipt Date: 20040303
  Transmission Date: 20041129
  Serious: Yes (Disabling)
  Sender: FDA-Public Use
  Company Number: HQ2681011JUN2002

PATIENT
  Age: 63 Year
  Sex: Female

DRUGS (7)
  1. DIMETAPP [Suspect]
     Dosage: ORAL
     Route: 048
  2. ALKA-SELTZER PLUS (ACETYLSALICYLIC ACID/CHLORPHENAMINE[ MALEATE/PHENYL [Suspect]
     Dosage: ORAL
     Route: 048
  3. ROBITUSSIN (GUAIFENESIN, SYRUP) [Suspect]
     Indication: COUGH
     Dosage: ORAL
     Route: 048
     Dates: start: 19980101, end: 19990101
  4. ROBITUSSIN (GUAIFENESIN, SYRUP) [Suspect]
     Indication: NASOPHARYNGITIS
     Dosage: ORAL
     Route: 048
     Dates: start: 19980101, end: 19990101
  5. ROBITUSSIN CF (GUAIFENESIN/DEXTROMETHORPHAN/PHENYLPROPANOLAMINE, SYRUP [Suspect]
     Indication: COUGH
     Dosage: ORAL
     Route: 048
     Dates: start: 19980101, end: 19990101
  6. ROBITUSSIN CF (GUAIFENESIN/DEXTROMETHORPHAN/PHENYLPROPANOLAMINE, SYRUP [Suspect]
     Indication: NASOPHARYNGITIS
     Dosage: ORAL
     Route: 048
     Dates: start: 19980101, end: 19990101
  7. TAVIST D [Suspect]
     Dosage: ORAL
     Route: 048

REACTIONS (2)
  - CEREBROVASCULAR ACCIDENT [None]
  - HAEMORRHAGE INTRACRANIAL [None]
